FAERS Safety Report 20757488 (Version 1)
Quarter: 2022Q2

REPORT INFORMATION
  Report Type: Spontaneous
  Country: GB (occurrence: GB)
  Receive Date: 20220427
  Receipt Date: 20220427
  Transmission Date: 20220720
  Serious: Yes (Other)
  Sender: FDA-Public Use
  Company Number: None

PATIENT
  Age: 70 Year
  Sex: Male
  Weight: 92.07 kg

DRUGS (10)
  1. DORZOLAMIDE [Suspect]
     Active Substance: DORZOLAMIDE
     Indication: Product used for unknown indication
     Dosage: 20 MILLIGRAM PER MILLILITRE
     Route: 047
  2. TIMOLOL [Suspect]
     Active Substance: TIMOLOL
     Indication: Product used for unknown indication
     Dosage: 5 MILLIGRAM PER MILLILITRE(5MG/ML )
     Route: 047
  3. BENDROFLUMETHIAZIDE [Concomitant]
     Active Substance: BENDROFLUMETHIAZIDE
     Dosage: 1 DOSAGE FORM, QD(TAKE IN THE MORNING)
     Dates: start: 20220127
  4. BRIMONIDINE [Concomitant]
     Active Substance: BRIMONIDINE TARTRATE
     Dosage: 1 DOSAGE FORM, BID(INSTILL 1 DROP TO THE AFFECTED EYE(S))
     Dates: start: 20220127
  5. CETIRIZINE [Concomitant]
     Active Substance: CETIRIZINE HYDROCHLORIDE
     Dosage: 10 MILLIGRAM, QD
     Dates: start: 20220128
  6. CHLORPHENIRAMINE MALEATE [Concomitant]
     Active Substance: CHLORPHENIRAMINE MALEATE
     Dosage: 4 MILLIGRAM(FOUR TO SIX HOURLY)
     Dates: start: 20220119
  7. EPIPEN [Concomitant]
     Active Substance: EPINEPHRINE
     Dosage: 300 MICROGRAM
     Dates: start: 20220128
  8. FUROSEMIDE [Concomitant]
     Active Substance: FUROSEMIDE
     Dosage: 20 MILLIGRAM, QD(TAKE IN THE MORNING)
     Dates: start: 20220221
  9. BIMATOPROST\TIMOLOL [Concomitant]
     Active Substance: BIMATOPROST\TIMOLOL
     Dosage: 1 DOSAGE FORM, QD(0.3MG/ML / 5MG/ML INSTIL TO BOTH EYES)
     Dates: start: 20220419
  10. PREDNISOLONE [Concomitant]
     Active Substance: PREDNISOLONE
     Dosage: 20 MILLIGRAM, QD
     Dates: start: 20220119

REACTIONS (2)
  - Swollen tongue [Recovered/Resolved]
  - Pharyngeal swelling [Unknown]
